FAERS Safety Report 22199913 (Version 4)
Quarter: 2024Q1

REPORT INFORMATION
  Report Type: Other
  Country: CO (occurrence: CO)
  Receive Date: 20230412
  Receipt Date: 20240220
  Transmission Date: 20240410
  Serious: Yes (Hospitalization, Other)
  Sender: FDA-Public Use
  Company Number: CO-TOLMAR, INC.-23CO039655

PATIENT
  Age: 85 Year
  Sex: Male

DRUGS (1)
  1. ELIGARD [Suspect]
     Active Substance: LEUPROLIDE ACETATE
     Indication: Prostate cancer
     Dosage: 45 MILLIGRAM, Q 6 MONTH
     Route: 058
     Dates: start: 20220901, end: 20230324

REACTIONS (11)
  - Intervertebral disc protrusion [Unknown]
  - Carotid artery occlusion [Unknown]
  - Syncope [Unknown]
  - Cerebrovascular accident [Recovered/Resolved with Sequelae]
  - Metastasis [Not Recovered/Not Resolved]
  - Heart rate decreased [Unknown]
  - Proctalgia [Not Recovered/Not Resolved]
  - Gait disturbance [Unknown]
  - Insurance issue [Not Recovered/Not Resolved]
  - Product dose omission issue [Not Recovered/Not Resolved]
  - Asthenia [Recovering/Resolving]

NARRATIVE: CASE EVENT DATE: 20230301
